FAERS Safety Report 8266177-5 (Version None)
Quarter: 2012Q2

REPORT INFORMATION
  Report Type: 
  Country: None (occurrence: None)
  Receive Date: 20120406
  Receipt Date: 20120404
  Transmission Date: 20120825
  Serious: Yes (Life-Threatening)
  Sender: FDA-Public Use
  Company Number: PHHY2012IT029263

PATIENT
  Sex: Male

DRUGS (2)
  1. EXJADE [Suspect]
     Indication: THALASSAEMIA BETA
     Dosage: 625 MG, DAILY
     Route: 048
     Dates: start: 20090115, end: 20120217
  2. EXJADE [Suspect]
     Dosage: UNK UKN, UNK

REACTIONS (3)
  - CONVULSION [None]
  - ENCEPHALITIS [None]
  - HYPERPYREXIA [None]
